FAERS Safety Report 17703072 (Version 3)
Quarter: 2020Q3

REPORT INFORMATION
  Report Type: Report from Study
  Country: US (occurrence: US)
  Receive Date: 20200423
  Receipt Date: 20200923
  Transmission Date: 20201104
  Serious: Yes (Hospitalization)
  Sender: FDA-Public Use
  Company Number: US-ROCHE-2587388

PATIENT
  Age: 55 Year
  Sex: Female
  Weight: 99.77 kg

DRUGS (3)
  1. EGANELISIB. [Suspect]
     Active Substance: EGANELISIB
     Indication: RENAL CELL CARCINOMA
     Dosage: ON 11/APR/2020, SHE RECEIVED LAST DOSE OF IPI 549 PRIOR TO SERIOUS ADVERSE EVENT.
     Route: 048
     Dates: start: 20200402, end: 20200411
  2. BEVACIZUMAB. [Suspect]
     Active Substance: BEVACIZUMAB
     Indication: RENAL CELL CARCINOMA
     Dosage: DATE OF LAST DOSE PRIOR TO THE ONSSET OF SAE: 02/APR/2020
     Route: 042
     Dates: start: 20200402, end: 20200402
  3. ATEZOLIZUMAB. [Suspect]
     Active Substance: ATEZOLIZUMAB
     Indication: RENAL CELL CARCINOMA
     Dosage: DATE OF LAST DOSE PRIOR TO THE ONSET OF SAE: 02/APR/2020
     Route: 042
     Dates: start: 20200402, end: 20200402

REACTIONS (1)
  - Wound complication [Recovered/Resolved]

NARRATIVE: CASE EVENT DATE: 20200410
